FAERS Safety Report 4941662-X (Version None)
Quarter: 2006Q1

REPORT INFORMATION
  Report Type: 
  Country: None (occurrence: None)
  Receive Date: 20060313
  Receipt Date: 20060301
  Transmission Date: 20060701
  Serious: Yes (Hospitalization)
  Sender: FDA-Public Use
  Company Number: IN-ROCHE-438688

PATIENT
  Age: 17 Day
  Sex: Male

DRUGS (3)
  1. CEFTRIAXONE [Suspect]
     Indication: SEPSIS
     Route: 065
  2. AMIKACIN [Suspect]
     Indication: SEPSIS
     Route: 065
  3. VITAMIN K [Concomitant]
     Dosage: AT BIRTH
     Route: 030

REACTIONS (3)
  - CHOLELITHIASIS [None]
  - CHOLESTASIS [None]
  - HAEMOGLOBIN DECREASED [None]
